FAERS Safety Report 20690463 (Version 2)
Quarter: 2022Q2

REPORT INFORMATION
  Report Type: Spontaneous
  Country: CA (occurrence: CA)
  Receive Date: 20220408
  Receipt Date: 20220411
  Transmission Date: 20220720
  Serious: Yes (Death, Other)
  Sender: FDA-Public Use
  Company Number: CA-JNJFOC-20220400076

PATIENT

DRUGS (2)
  1. IBRUTINIB [Interacting]
     Active Substance: IBRUTINIB
     Indication: Chronic lymphocytic leukaemia
     Route: 048
     Dates: start: 201411, end: 201806
  2. IBRUTINIB [Interacting]
     Active Substance: IBRUTINIB
     Indication: Lymphocytic lymphoma

REACTIONS (13)
  - Cardiac disorder [Fatal]
  - Neoplasm malignant [Fatal]
  - Infection [Fatal]
  - Cytopenia [Unknown]
  - Atrial fibrillation [Unknown]
  - Haemorrhage [Unknown]
  - Pneumonia [Unknown]
  - Musculoskeletal disorder [Unknown]
  - Toxicity to various agents [Unknown]
  - Drug interaction [Unknown]
  - Incorrect dose administered [Unknown]
  - Fatigue [Unknown]
  - Contusion [Unknown]
